FAERS Safety Report 6963930-2 (Version None)
Quarter: 2010Q3

REPORT INFORMATION
  Report Type: 
  Country: None (occurrence: None)
  Receive Date: 20100831
  Receipt Date: 20100816
  Transmission Date: 20110219
  Serious: Yes (Other)
  Sender: FDA-Public Use
  Company Number: VAL_00456_2010

PATIENT
  Age: 15 Year
  Sex: Female

DRUGS (2)
  1. CALCITRIOL [Suspect]
     Indication: RICKETS
     Dosage: (0.25 G), (0.5 G)
  2. CALCIUM (ELEMENTAL CALCIUM-CALCIUM) [Suspect]
     Indication: RICKETS
     Dosage: (500 MG ORAL), (750 MG ORAL)
     Route: 048

REACTIONS (2)
  - HYPERCALCIURIA [None]
  - NEPHROLITHIASIS [None]
